FAERS Safety Report 17281483 (Version 2)
Quarter: 2022Q2

REPORT INFORMATION
  Report Type: Spontaneous
  Country: IN (occurrence: IN)
  Receive Date: 20200117
  Receipt Date: 20220408
  Transmission Date: 20220721
  Serious: Yes (Other)
  Sender: FDA-Public Use
  Company Number: IN-SUN PHARMACEUTICAL INDUSTRIES LTD-2020R1-232846

PATIENT
  Age: 45 Year
  Sex: Female

DRUGS (2)
  1. ALBUTEROL [Interacting]
     Active Substance: ALBUTEROL
     Indication: Product used for unknown indication
     Route: 065
  2. AMINOPHYLLINE [Interacting]
     Active Substance: AMINOPHYLLINE
     Indication: Product used for unknown indication
     Route: 065

REACTIONS (2)
  - Tachycardia [Unknown]
  - Drug interaction [Unknown]
